FAERS Safety Report 8236851-5 (Version None)
Quarter: 2012Q1

REPORT INFORMATION
  Report Type: 
  Country: None (occurrence: None)
  Receive Date: 20120327
  Receipt Date: 20120216
  Transmission Date: 20120608
  Serious: No
  Sender: FDA-Public Use
  Company Number: US-GLAXOSMITHKLINE-A0926803A

PATIENT
  Age: 18 Year
  Sex: Female

DRUGS (2)
  1. YASMIN [Concomitant]
  2. LAMICTAL XR [Suspect]
     Indication: PRODUCT USED FOR UNKNOWN INDICATION
     Dosage: 200MG THREE TIMES PER DAY
     Route: 048
     Dates: start: 20100528

REACTIONS (1)
  - DRUG SCREEN POSITIVE [None]
